FAERS Safety Report 9937995 (Version 1)
Quarter: 2014Q1

REPORT INFORMATION
  Report Type: Spontaneous
  Country: FR (occurrence: FR)
  Receive Date: 20140303
  Receipt Date: 20140303
  Transmission Date: 20141002
  Serious: Yes (Other)
  Sender: FDA-Public Use
  Company Number: FR-009507513-1402FRA011231

PATIENT
  Sex: Male

DRUGS (1)
  1. SINEMET L.P. [Suspect]
     Indication: PARKINSON^S DISEASE
     Dosage: UNK
     Route: 048
     Dates: end: 20131221

REACTIONS (1)
  - Skin cancer [Unknown]
